FAERS Safety Report 4705345-3 (Version None)
Quarter: 2005Q2

REPORT INFORMATION
  Report Type: 
  Country: None (occurrence: None)
  Receive Date: 20050629
  Receipt Date: 20050614
  Transmission Date: 20051028
  Serious: Yes (Life-Threatening, Other)
  Sender: FDA-Public Use
  Company Number: GXKR2005SK01195

PATIENT
  Age: 40 Year
  Sex: Female

DRUGS (1)
  1. AMOXICILLIN [Suspect]
     Dosage: 1000 MG, ORAL
     Route: 048
     Dates: start: 20050124

REACTIONS (7)
  - ABDOMINAL PAIN [None]
  - DIARRHOEA [None]
  - GENERALISED ERYTHEMA [None]
  - PARAESTHESIA [None]
  - PRURITUS GENERALISED [None]
  - TACHYCARDIA [None]
  - VOMITING [None]
